FAERS Safety Report 19949550 (Version 1)
Quarter: 2021Q4

REPORT INFORMATION
  Report Type: Spontaneous
  Country: DE (occurrence: DE)
  Receive Date: 20211013
  Receipt Date: 20211013
  Transmission Date: 20220303
  Serious: Yes (Other)
  Sender: FDA-Public Use
  Company Number: DE-AUROBINDO-AUR-APL-2021-013347

PATIENT
  Sex: Male
  Weight: 84 kg

DRUGS (7)
  1. MIRTAZAPINE [Suspect]
     Active Substance: MIRTAZAPINE
     Indication: Pain
     Dosage: 15 MILLIGRAM, DAILY IN THE EVENING
     Route: 048
     Dates: start: 20210225, end: 20210307
  2. RAMIPRIL [Concomitant]
     Active Substance: RAMIPRIL
     Indication: Cardiac disorder
     Dosage: 2.5 MILLIGRAM, ONCE A DAY IN THE MORNING
     Route: 065
  3. ASPIRIN [Concomitant]
     Active Substance: ASPIRIN
     Indication: Cardiac disorder
     Dosage: UNK
     Route: 065
  4. TORSEMIDE [Concomitant]
     Active Substance: TORSEMIDE
     Indication: Fluid retention
     Dosage: 10 MILLIGRAM
     Route: 065
  5. PANTOPRAZOLE SODIUM [Concomitant]
     Active Substance: PANTOPRAZOLE SODIUM
     Indication: Abdominal discomfort
     Dosage: 40 MILLIGRAM
     Route: 065
  6. NEBIVOLOL [Concomitant]
     Active Substance: NEBIVOLOL
     Indication: Product used for unknown indication
     Dosage: 2.5 MILLIGRAM
     Route: 065
  7. Rosu [Concomitant]
     Indication: Blood cholesterol

REACTIONS (6)
  - Ileus [Recovered/Resolved]
  - Weight increased [Recovered/Resolved]
  - Increased appetite [Recovered/Resolved]
  - Abdominal distension [Recovered/Resolved]
  - Constipation [Recovered/Resolved]
  - Off label use [Unknown]

NARRATIVE: CASE EVENT DATE: 20210225
